FAERS Safety Report 9439320 (Version 2)
Quarter: 2013Q3

REPORT INFORMATION
  Report Type: Spontaneous
  Country: BR (occurrence: BR)
  Receive Date: 20130804
  Receipt Date: 20130821
  Transmission Date: 20140515
  Serious: Yes (Hospitalization)
  Sender: FDA-Public Use
  Company Number: BR-ABBOTT-13X-020-1125905-00

PATIENT
  Age: 6 Year
  Sex: Male
  Weight: 22 kg

DRUGS (1)
  1. KLARICID PEDIATRICO [Suspect]
     Indication: INFECTION PROPHYLAXIS
     Dosage: START TIME AT 20 PM; 2 DOSES
     Route: 048
     Dates: start: 20130724, end: 20130725

REACTIONS (3)
  - Pneumonia [Recovered/Resolved]
  - Urticaria [Recovering/Resolving]
  - Nasal congestion [Unknown]
